FAERS Safety Report 7992295-2 (Version None)
Quarter: 2011Q4

REPORT INFORMATION
  Report Type: 
  Country: None (occurrence: None)
  Receive Date: 20111219
  Receipt Date: 20110407
  Transmission Date: 20120403
  Serious: No
  Sender: FDA-Public Use
  Company Number: US-ASTRAZENECA-2011SE19813

PATIENT
  Age: 58 Year
  Sex: Male
  Weight: 83.9 kg

DRUGS (4)
  1. PROTONIX [Concomitant]
  2. CRESTOR [Suspect]
     Route: 048
  3. BLOOD PRSSURE PILL [Concomitant]
     Indication: HYPERTENSION
  4. CRESTOR [Suspect]
     Indication: BLOOD CHOLESTEROL INCREASED
     Dosage: DAILY
     Route: 048
     Dates: start: 20100601, end: 20100601

REACTIONS (1)
  - DYSPEPSIA [None]
